FAERS Safety Report 7163804-0 (Version None)
Quarter: 2010Q4

REPORT INFORMATION
  Report Type: 
  Country: None (occurrence: None)
  Receive Date: 20101215
  Receipt Date: 20100616
  Transmission Date: 20110411
  Serious: Yes (Other)
  Sender: FDA-Public Use
  Company Number: US-PFIZER INC-2010051946

PATIENT
  Sex: Female
  Weight: 101.6 kg

DRUGS (8)
  1. LYRICA [Interacting]
     Indication: FIBROMYALGIA
     Dosage: 75 MG, 2X/DAY
     Route: 048
     Dates: start: 20100201
  2. ZOLOFT [Interacting]
     Indication: FIBROMYALGIA
     Dosage: 50 MG, 1X/DAY
     Dates: start: 20100101
  3. LAMICTAL [Suspect]
     Indication: DEPRESSION
     Dosage: 100 MG, 1X/DAY
     Route: 048
     Dates: start: 20030101
  4. BACLOFEN [Suspect]
     Indication: FIBROMYALGIA
     Dosage: 100 MG, UNK
     Dates: start: 20100101
  5. CYMBALTA [Interacting]
     Indication: FIBROMYALGIA
     Dosage: 60 MG, UNK
     Dates: start: 20100404, end: 20100101
  6. CYMBALTA [Interacting]
     Indication: DEPRESSION
  7. TRAMADOL [Concomitant]
     Indication: PAIN
     Dosage: 50 MG, UNK
     Route: 048
  8. TRAZODONE [Concomitant]
     Indication: SLEEP DISORDER
     Dosage: 150 MG, UNK
     Route: 048

REACTIONS (7)
  - DISTURBANCE IN ATTENTION [None]
  - DRUG INTERACTION [None]
  - FIBROMYALGIA [None]
  - FLUID RETENTION [None]
  - MEMORY IMPAIRMENT [None]
  - SWELLING FACE [None]
  - WEIGHT INCREASED [None]
